FAERS Safety Report 8202535-2 (Version None)
Quarter: 2012Q1

REPORT INFORMATION
  Report Type: 
  Country: None (occurrence: None)
  Receive Date: 20120312
  Receipt Date: 20110701
  Transmission Date: 20120608
  Serious: Yes (Death, Hospitalization, Disabling)
  Sender: FDA-Public Use
  Company Number: GXKR2010DK13646

PATIENT
  Sex: Male
  Weight: 15 kg

DRUGS (3)
  1. METHOTREXATE [Suspect]
     Indication: ACUTE MYELOID LEUKAEMIA
     Dates: start: 20091202, end: 20100526
  2. CYTARABINE [Suspect]
     Indication: ACUTE MYELOID LEUKAEMIA
     Route: 037
     Dates: start: 20091205, end: 20100527
  3. ETOPOPHOS PRESERVATIVE FREE [Concomitant]
     Indication: ACUTE MYELOID LEUKAEMIA
     Dosage: 100 MILLIGRAM(S)
     Route: 042
     Dates: start: 20100210, end: 20100530

REACTIONS (20)
  - TENDON DISORDER [None]
  - TACHYCARDIA [None]
  - HYPOKINESIA [None]
  - ABNORMAL BEHAVIOUR [None]
  - DISTURBANCE IN ATTENTION [None]
  - POOR QUALITY SLEEP [None]
  - PYREXIA [None]
  - ASTHENIA [None]
  - DEAFNESS [None]
  - BALANCE DISORDER [None]
  - GENERAL PHYSICAL HEALTH DETERIORATION [None]
  - GAIT DISTURBANCE [None]
  - ENCEPHALITIS [None]
  - ATAXIA [None]
  - HYPOTENSION [None]
  - ANXIETY [None]
  - NEOPLASM MALIGNANT [None]
  - STENOTROPHOMONAS SEPSIS [None]
  - LEUKOENCEPHALOPATHY [None]
  - LIMB DISCOMFORT [None]
